FAERS Safety Report 10459303 (Version 1)
Quarter: 2014Q3

REPORT INFORMATION
  Report Type: Spontaneous
  Country: JP (occurrence: JP)
  Receive Date: 20140917
  Receipt Date: 20140917
  Transmission Date: 20150326
  Serious: Yes (Death)
  Sender: FDA-Public Use
  Company Number: JP-TEVA-508396ISR

PATIENT
  Age: 52 Year
  Sex: Female

DRUGS (1)
  1. RISPERIDONE. [Suspect]
     Active Substance: RISPERIDONE
     Dosage: 82 X 1MG TABLETS
     Route: 048
     Dates: end: 20120108

REACTIONS (3)
  - Overdose [Fatal]
  - Sudden death [Fatal]
  - Toxicity to various agents [Fatal]
